FAERS Safety Report 13984706 (Version 5)
Quarter: 2018Q3

REPORT INFORMATION
  Report Type: Spontaneous
  Country: JP (occurrence: JP)
  Receive Date: 20170918
  Receipt Date: 20180711
  Transmission Date: 20181010
  Serious: Yes (Hospitalization, Other)
  Sender: FDA-Public Use
  Company Number: JP-BRISTOL-MYERS SQUIBB COMPANY-BMS-2017-083423

PATIENT
  Age: 72 Year
  Sex: Male

DRUGS (1)
  1. OPDIVO [Suspect]
     Active Substance: NIVOLUMAB
     Indication: RENAL CELL CARCINOMA
     Dosage: 3 MG/KG, QD
     Route: 041
     Dates: start: 20170627

REACTIONS (5)
  - Colitis [Not Recovered/Not Resolved]
  - Pyrexia [Not Recovered/Not Resolved]
  - C-reactive protein increased [Not Recovered/Not Resolved]
  - Blood alkaline phosphatase increased [Unknown]
  - Cholangitis sclerosing [Unknown]

NARRATIVE: CASE EVENT DATE: 20170912
